FAERS Safety Report 13761279 (Version 1)
Quarter: 2017Q3

REPORT INFORMATION
  Report Type: Spontaneous
  Country: CZ (occurrence: CZ)
  Receive Date: 20170717
  Receipt Date: 20170717
  Transmission Date: 20171127
  Serious: Yes (Other)
  Sender: FDA-Public Use
  Company Number: PHHY2017CZ101719

PATIENT
  Sex: Female

DRUGS (6)
  1. DOCETAXEL. [Suspect]
     Active Substance: DOCETAXEL
     Indication: BREAST CANCER METASTATIC
     Dosage: 75 MG/M2, EVERY THREE WEEKS
     Route: 065
     Dates: start: 201412
  2. PERTUZUMAB. [Suspect]
     Active Substance: PERTUZUMAB
     Dosage: 420 MG, EVERY THREE WEEKS
     Route: 065
     Dates: start: 201412
  3. TRASTUZUMAB. [Suspect]
     Active Substance: TRASTUZUMAB
     Indication: BREAST CANCER METASTATIC
     Dosage: 8 MG/KG, EVERY 3 WEEKS
     Route: 065
     Dates: start: 201412
  4. TRASTUZUMAB. [Suspect]
     Active Substance: TRASTUZUMAB
     Dosage: 6 MG/KG, EVERY THREE WEEKS
     Route: 065
     Dates: start: 201412
  5. XGEVA [Concomitant]
     Active Substance: DENOSUMAB
     Indication: PRODUCT USED FOR UNKNOWN INDICATION
     Dosage: 120 MG, EVERY 4 WEEKS
     Route: 065
     Dates: start: 201412
  6. PERTUZUMAB. [Suspect]
     Active Substance: PERTUZUMAB
     Indication: BREAST CANCER METASTATIC
     Dosage: 840 MG, EVERY THREE WEEKS
     Route: 065
     Dates: start: 201412

REACTIONS (11)
  - Pain in extremity [Unknown]
  - Decreased appetite [Unknown]
  - Leukopenia [Unknown]
  - Anaemia of chronic disease [Unknown]
  - Retroperitoneal lymphadenopathy [Unknown]
  - Weight decreased [Unknown]
  - Breast cancer metastatic [Unknown]
  - Fatigue [Unknown]
  - Drug effect incomplete [Unknown]
  - Malignant neoplasm progression [Unknown]
  - Metastases to liver [Unknown]

NARRATIVE: CASE EVENT DATE: 201601
